FAERS Safety Report 14022111 (Version 6)
Quarter: 2018Q3

REPORT INFORMATION
  Report Type: Report from Study
  Country: US (occurrence: US)
  Receive Date: 20170928
  Receipt Date: 20180820
  Transmission Date: 20181010
  Serious: Yes (Hospitalization)
  Sender: FDA-Public Use
  Company Number: US-ACTELION-A-US2017-157286

PATIENT
  Age: 59 Year
  Sex: Female
  Weight: 79.37 kg

DRUGS (6)
  1. ELIQUIS [Concomitant]
     Active Substance: APIXABAN
  2. VELETRI [Suspect]
     Active Substance: EPOPROSTENOL
     Dosage: 13 NG/KG, PER MIN
     Route: 042
  3. VELETRI [Suspect]
     Active Substance: EPOPROSTENOL
     Dosage: 15 NG/KG, PER MIN
     Route: 042
  4. SILDENAFIL. [Concomitant]
     Active Substance: SILDENAFIL
  5. LETAIRIS [Concomitant]
     Active Substance: AMBRISENTAN
  6. VELETRI [Suspect]
     Active Substance: EPOPROSTENOL
     Indication: PULMONARY HYPERTENSION
     Dosage: 5 NG/KG, PER MIN
     Route: 042

REACTIONS (12)
  - Cellulitis [Unknown]
  - Petechiae [Unknown]
  - Rash papular [Unknown]
  - Device related infection [Unknown]
  - Application site erythema [Unknown]
  - Head discomfort [Unknown]
  - Catheter management [Unknown]
  - Application site vesicles [Unknown]
  - Application site pruritus [Unknown]
  - Infection [Unknown]
  - Headache [Unknown]
  - Dermatitis contact [Unknown]
